FAERS Safety Report 9162268 (Version 1)
Quarter: 2013Q1

REPORT INFORMATION
  Report Type: Spontaneous
  Country: US (occurrence: US)
  Receive Date: 20130314
  Receipt Date: 20130314
  Transmission Date: 20140127
  Serious: Yes (Life-Threatening)
  Sender: FDA-Public Use
  Company Number: PHEH2013US005790

PATIENT
  Sex: Female

DRUGS (5)
  1. EXFORGE HCT [Suspect]
     Dosage: UNK UKN, UNK
  2. COMBIVENT [Concomitant]
     Dosage: UNK UKN, UNK
  3. XANAX [Concomitant]
     Dosage: UNK UKN, UNK
  4. LIPITOR [Concomitant]
     Dosage: UNK UKN, UNK
  5. SEROQUEL [Concomitant]
     Dosage: UNK UKN, UNK

REACTIONS (1)
  - Feeling abnormal [Unknown]
